FAERS Safety Report 10372986 (Version 3)
Quarter: 2014Q4

REPORT INFORMATION
  Report Type: Spontaneous
  Country: GB (occurrence: GB)
  Receive Date: 20140808
  Receipt Date: 20141114
  Transmission Date: 20150528
  Serious: Yes (Hospitalization)
  Sender: FDA-Public Use
  Company Number: GB-ABBVIE-14P-167-1267984-00

PATIENT
  Sex: Male
  Weight: 52 kg

DRUGS (1)
  1. CREON [Suspect]
     Active Substance: PANCRELIPASE AMYLASE\PANCRELIPASE LIPASE\PANCRELIPASE PROTEASE
     Indication: PRODUCT USED FOR UNKNOWN INDICATION
     Dosage: 10,000 MG. ROUTE: PEG TUBE
     Route: 065
     Dates: end: 20140707

REACTIONS (4)
  - Incorrect route of drug administration [Recovered/Resolved]
  - Emotional distress [Recovered/Resolved]
  - Device occlusion [Recovered/Resolved]
  - Wrong technique in drug usage process [Unknown]
